FAERS Safety Report 7880383-0 (Version None)
Quarter: 2011Q4

REPORT INFORMATION
  Report Type: 
  Country: None (occurrence: None)
  Receive Date: 20111101
  Receipt Date: 20111018
  Transmission Date: 20120403
  Serious: Yes (Hospitalization)
  Sender: FDA-Public Use
  Company Number: PHEH2011US07275

PATIENT
  Sex: Male

DRUGS (3)
  1. GLEEVEC [Suspect]
     Dosage: UNK UKN, PER DAY
  2. GLEEVEC [Suspect]
     Dosage: 400 MG, QD
  3. VITAMIN TAB [Concomitant]

REACTIONS (5)
  - ELECTROLYTE IMBALANCE [None]
  - MALAISE [None]
  - BLOOD POTASSIUM DECREASED [None]
  - BLOOD MAGNESIUM DECREASED [None]
  - EATING DISORDER [None]
